FAERS Safety Report 8182518-1 (Version None)
Quarter: 2012Q1

REPORT INFORMATION
  Report Type: 
  Country: None (occurrence: None)
  Receive Date: 20120305
  Receipt Date: 20120222
  Transmission Date: 20120608
  Serious: No
  Sender: FDA-Public Use
  Company Number: US-BIOGENIDEC-2011BI041105

PATIENT
  Age: 28 Year
  Sex: Female

DRUGS (5)
  1. SOLU-MEDROL [Concomitant]
     Dates: start: 20101006
  2. SOLU-MEDROL [Concomitant]
     Indication: MULTIPLE SCLEROSIS
     Dates: start: 20100101
  3. SOLU-MEDROL [Concomitant]
     Indication: LOWER RESPIRATORY TRACT INFECTION
     Dates: start: 20100101
  4. TYSABRI [Suspect]
     Indication: MULTIPLE SCLEROSIS
     Route: 042
     Dates: start: 20110831
  5. SOLU-MEDROL [Concomitant]
     Dates: start: 20101006

REACTIONS (3)
  - NASOPHARYNGITIS [None]
  - GASTROENTERITIS VIRAL [None]
  - LOWER RESPIRATORY TRACT INFECTION [None]
